FAERS Safety Report 25484699 (Version 1)
Quarter: 2025Q2

REPORT INFORMATION
  Report Type: Spontaneous
  Country: US (occurrence: None)
  Receive Date: 20250627
  Receipt Date: 20250627
  Transmission Date: 20250716
  Serious: No
  Sender: FDA-CTU
  Company Number: None

PATIENT
  Age: 24 Year
  Sex: Female
  Weight: 112.5 kg

DRUGS (12)
  1. RINVOQ [Suspect]
     Active Substance: UPADACITINIB
     Indication: Rheumatoid arthritis
     Dosage: 1 TABLET DALY ORAL
     Route: 048
     Dates: start: 20250226
  2. DULOXETINE [Concomitant]
     Active Substance: DULOXETINE
  3. GABAPENTIN [Concomitant]
     Active Substance: GABAPENTIN
  4. LISDEXAMFETAMINE [Concomitant]
     Active Substance: LISDEXAMFETAMINE
  5. VITAMINS [Concomitant]
     Active Substance: VITAMINS
  6. RINVOQ [Concomitant]
     Active Substance: UPADACITINIB
  7. ACETAMINOPHEN [Concomitant]
     Active Substance: ACETAMINOPHEN
  8. HEALTH NUTRIENT [Concomitant]
  9. HEALTH ANTI-INFLAMMATORY [Concomitant]
  10. PUROOMEGA( (FISHOIL) [Concomitant]
  11. ACETAMINOPHEN [Concomitant]
     Active Substance: ACETAMINOPHEN
  12. IBUPROFEN [Concomitant]
     Active Substance: IBUPROFEN

REACTIONS (3)
  - Pleurisy [None]
  - Joint stiffness [None]
  - Peripheral swelling [None]

NARRATIVE: CASE EVENT DATE: 20250627
